FAERS Safety Report 8785060 (Version 1)
Quarter: 2012Q4

REPORT INFORMATION
  Report Type: Spontaneous
  Country: US (occurrence: None)
  Receive Date: 20120907
  Receipt Date: 20120907
  Transmission Date: 20130627
  Serious: Yes (Hospitalization)
  Sender: FDA-Public Use
  Company Number: None

PATIENT
  Age: 68 Year
  Sex: Male

DRUGS (1)
  1. ZYTIGA [Suspect]
     Indication: MALIGNANT NEOPLASM OF PROSTATE
     Route: 048
     Dates: start: 20120808

REACTIONS (3)
  - Chest pain [None]
  - Myalgia [None]
  - Cough [None]
